FAERS Safety Report 23627192 (Version 1)
Quarter: 2024Q1

REPORT INFORMATION
  Report Type: Spontaneous
  Country: US (occurrence: US)
  Receive Date: 20240313
  Receipt Date: 20240313
  Transmission Date: 20240410
  Serious: Yes (Other)
  Sender: FDA-Public Use
  Company Number: US-002147023-NVSC2024US047652

PATIENT

DRUGS (1)
  1. KESIMPTA [Suspect]
     Active Substance: OFATUMUMAB
     Indication: Product used for unknown indication
     Dosage: UNK
     Route: 065

REACTIONS (8)
  - Multiple sclerosis [Unknown]
  - Insomnia [Unknown]
  - Fatigue [Unknown]
  - Muscular weakness [Unknown]
  - Incoherent [Unknown]
  - Affect lability [Unknown]
  - Post-traumatic stress disorder [Unknown]
  - Ill-defined disorder [Unknown]
